FAERS Safety Report 10041855 (Version 2)
Quarter: 2014Q1

REPORT INFORMATION
  Report Type: Spontaneous
  Country: US (occurrence: US)
  Receive Date: 20140327
  Receipt Date: 20140327
  Transmission Date: 20141002
  Serious: Yes (Disabling)
  Sender: FDA-Public Use
  Company Number: US-GE HEALTHCARE MEDICAL DIAGNOSTICS-OSCN-PR-0801S-0005

PATIENT
  Sex: Female

DRUGS (4)
  1. GADOLINIUM (UNSPECIFIED) [Suspect]
     Indication: PRODUCT USED FOR UNKNOWN INDICATION
     Dates: start: 20070901, end: 20070901
  2. GADOLINIUM (UNSPECIFIED) [Suspect]
     Dates: start: 20071123, end: 20071123
  3. GADOLINIUM (UNSPECIFIED) [Suspect]
     Dates: start: 20071127, end: 20071127
  4. GADOLINIUM (UNSPECIFIED) [Suspect]
     Dates: start: 20081122, end: 20081122

REACTIONS (1)
  - Nephrogenic systemic fibrosis [Not Recovered/Not Resolved]
